FAERS Safety Report 21697847 (Version 4)
Quarter: 2023Q2

REPORT INFORMATION
  Report Type: Spontaneous
  Country: AR (occurrence: AR)
  Receive Date: 20221208
  Receipt Date: 20230516
  Transmission Date: 20230721
  Serious: Yes (Hospitalization, Other)
  Sender: FDA-Public Use
  Company Number: AR-PINT-2022-Neratinib-060

PATIENT

DRUGS (6)
  1. NERLYNX [Suspect]
     Active Substance: NERATINIB
     Indication: HER2 positive breast cancer
     Dosage: 120 MG, DAILY
     Route: 048
     Dates: start: 20210719
  2. NERLYNX [Suspect]
     Active Substance: NERATINIB
     Dosage: 40 MG, DAILY
     Route: 048
     Dates: start: 202205
  3. NERLYNX [Suspect]
     Active Substance: NERATINIB
     Dosage: 160 MG, DAILY
     Route: 048
     Dates: start: 20221024
  4. NERLYNX [Suspect]
     Active Substance: NERATINIB
     Dosage: 120 MG
     Route: 048
  5. CAPECITABINE [Concomitant]
     Active Substance: CAPECITABINE
     Indication: Product used for unknown indication
     Dosage: 4 CAPECITABINE PILLS
  6. COVID-19 vaccine [Concomitant]
     Indication: Product used for unknown indication
     Dosage: COVID VACCINE APPLICATION

REACTIONS (4)
  - Off label use [Recovered/Resolved]
  - Onychomycosis [Recovered/Resolved]
  - Brain scan abnormal [Unknown]
  - Cerebellar tumour [Unknown]

NARRATIVE: CASE EVENT DATE: 20210719
